FAERS Safety Report 21195508 (Version 1)
Quarter: 2022Q3

REPORT INFORMATION
  Report Type: Report from Study
  Country: IT (occurrence: IT)
  Receive Date: 20220810
  Receipt Date: 20220810
  Transmission Date: 20221026
  Serious: Yes (Hospitalization, Other)
  Sender: FDA-Public Use
  Company Number: IT-CELGENE-ITA-20190701828

PATIENT
  Age: 77 Year
  Sex: Male

DRUGS (5)
  1. POMALIDOMIDE [Suspect]
     Active Substance: POMALIDOMIDE
     Indication: Plasma cell myeloma
     Dosage: FREQUENCY TEXT: ON DAYS 1-21 OF 28 DAYS CYCLES?DURATION TEXT : CYCLE 1
     Route: 048
     Dates: start: 20181105, end: 20181125
  2. DEXAMETHASONE [Suspect]
     Active Substance: DEXAMETHASONE
     Indication: Plasma cell myeloma
     Dosage: DURATION TEXT : CYCLE 1
     Route: 048
     Dates: start: 20181105, end: 20181126
  3. DEXAMETHASONE [Suspect]
     Active Substance: DEXAMETHASONE
     Dosage: DURATION TEXT : CYCLE 1
     Route: 048
     Dates: start: 20181112
  4. DEXAMETHASONE [Suspect]
     Active Substance: DEXAMETHASONE
     Dosage: DURATION TEXT : CYCLE 1
     Route: 048
     Dates: start: 20181119
  5. DEXAMETHASONE [Suspect]
     Active Substance: DEXAMETHASONE
     Dosage: DURATION TEXT : CYCLE 1
     Route: 048
     Dates: start: 20181126

REACTIONS (1)
  - Pneumonitis [Recovered/Resolved]

NARRATIVE: CASE EVENT DATE: 20190627
